FAERS Safety Report 19580746 (Version 1)
Quarter: 2021Q3

REPORT INFORMATION
  Report Type: Spontaneous
  Country: US (occurrence: US)
  Receive Date: 20210719
  Receipt Date: 20210719
  Transmission Date: 20211014
  Serious: No
  Sender: FDA-Public Use
  Company Number: US-NOVOPROD-803792

PATIENT
  Age: 65 Year
  Sex: Female

DRUGS (2)
  1. BASAGLAR [Concomitant]
     Active Substance: INSULIN GLARGINE
     Indication: PRODUCT USED FOR UNKNOWN INDICATION
     Dosage: UNK
     Route: 065
  2. OZEMPIC [Suspect]
     Active Substance: SEMAGLUTIDE
     Indication: PRODUCT USED FOR UNKNOWN INDICATION
     Dosage: 0.25 MG
     Route: 058
     Dates: start: 20210402

REACTIONS (7)
  - Incorrect dose administered [Unknown]
  - Headache [Unknown]
  - Abdominal pain [Unknown]
  - Agitation [Unknown]
  - Nausea [Unknown]
  - Irritability [Unknown]
  - Constipation [Unknown]

NARRATIVE: CASE EVENT DATE: 202104
